FAERS Safety Report 19919527 (Version 7)
Quarter: 2021Q4

REPORT INFORMATION
  Report Type: Report from Study
  Country: TR (occurrence: TR)
  Receive Date: 20211004
  Receipt Date: 20211116
  Transmission Date: 20220303
  Serious: Yes (Hospitalization)
  Sender: FDA-Public Use
  Company Number: TR-AMGEN-TURCT2021137982

PATIENT
  Age: 55 Year
  Sex: Male
  Weight: 81 kg

DRUGS (13)
  1. CARFILZOMIB [Suspect]
     Active Substance: CARFILZOMIB
     Indication: Plasma cell myeloma
     Dosage: 52 MILLIGRAM, PER CHEMO REGIM
     Route: 042
     Dates: start: 20210304
  2. CARFILZOMIB [Suspect]
     Active Substance: CARFILZOMIB
     Dosage: UNK UNK, PER CHEMO REGIM
     Route: 042
     Dates: start: 20211005
  3. LENALIDOMIDE [Suspect]
     Active Substance: LENALIDOMIDE
     Indication: Plasma cell myeloma
     Dosage: 25 MILLIGRAM
     Route: 065
     Dates: start: 20210304
  4. DEXAMETHASONE [Suspect]
     Active Substance: DEXAMETHASONE
     Indication: Plasma cell myeloma
     Dosage: 40 MILLIGRAM
     Route: 065
     Dates: start: 20210304
  5. AERIUS (DESLORATADINE) [Concomitant]
     Active Substance: DESLORATADINE
     Dosage: 5 MILLIGRAM
     Route: 048
     Dates: start: 20210702
  6. LEVOFLOXACIN [Concomitant]
     Active Substance: LEVOFLOXACIN
     Dosage: 500 MILLIGRAM
     Route: 048
     Dates: start: 20210826, end: 20210830
  7. SELECTRA [SERTRALINE HYDROCHLORIDE] [Concomitant]
     Dosage: 100 MILLIGRAM
     Route: 048
     Dates: start: 2018
  8. QUETIAPINE FUMARATE [Concomitant]
     Active Substance: QUETIAPINE FUMARATE
     Dosage: 25 MILLIGRAM
     Route: 048
     Dates: start: 2018
  9. PROTONEX [Concomitant]
     Dosage: 40 MILLIGRAM
     Route: 048
     Dates: start: 2011
  10. PAMIDRIA [Concomitant]
     Dosage: 90 MILLIGRAM
     Dates: start: 20210304
  11. ASPIRIN [Concomitant]
     Active Substance: ASPIRIN
     Dosage: 100 MILLIGRAM
     Dates: start: 20210304
  12. ACIKLOVIR [Concomitant]
     Dosage: 800 MILLIGRAM
     Dates: start: 20210304
  13. PERINDOPRIL ERBUMINE [Concomitant]
     Active Substance: PERINDOPRIL ERBUMINE
     Dosage: 10 MILLIGRAM
     Route: 048
     Dates: start: 2011

REACTIONS (1)
  - COVID-19 [Recovered/Resolved]

NARRATIVE: CASE EVENT DATE: 20210902
